FAERS Safety Report 12929893 (Version 1)
Quarter: 2016Q4

REPORT INFORMATION
  Report Type: Spontaneous
  Country: US (occurrence: US)
  Receive Date: 20161110
  Receipt Date: 20161110
  Transmission Date: 20170207
  Serious: No
  Sender: FDA-Public Use
  Company Number: None

PATIENT
  Age: 35 Year
  Sex: Female

DRUGS (1)
  1. EPCLUSA [Suspect]
     Active Substance: SOFOSBUVIR\VELPATASVIR
     Indication: HEPATITIS C

REACTIONS (9)
  - Dizziness [None]
  - Pruritus [None]
  - Fatigue [None]
  - Vomiting [None]
  - Memory impairment [None]
  - Nausea [None]
  - Pain [None]
  - Pyrexia [None]
  - Disturbance in attention [None]

NARRATIVE: CASE EVENT DATE: 20161109
